FAERS Safety Report 4855675-X (Version None)
Quarter: 2005Q4

REPORT INFORMATION
  Report Type: 
  Country: None (occurrence: None)
  Receive Date: 20051214
  Receipt Date: 20051128
  Transmission Date: 20060501
  Serious: Yes (Other)
  Sender: FDA-Public Use
  Company Number: 2005BI021254

PATIENT
  Sex: Male

DRUGS (1)
  1. AVONEX [Suspect]
     Indication: MULTIPLE SCLEROSIS
     Dosage: 30 UG;QW; TRPL
     Route: 064
     Dates: end: 20051104

REACTIONS (2)
  - DRUG EXPOSURE DURING PREGNANCY [None]
  - KIDNEY DUPLEX [None]
